FAERS Safety Report 8985501 (Version 2)
Quarter: 2013Q2

REPORT INFORMATION
  Report Type: Spontaneous
  Country: BE (occurrence: BE)
  Receive Date: 20121226
  Receipt Date: 20130403
  Transmission Date: 20140414
  Serious: Yes (Life-Threatening, Hospitalization)
  Sender: FDA-Public Use
  Company Number: BE-B.I. PHARMACEUTICALS,INC./RIDGEFIELD-2012-BL-00661BL

PATIENT
  Age: 86 Year
  Sex: Female
  Weight: 56 kg

DRUGS (3)
  1. PRADAXA [Suspect]
     Indication: ATRIAL FIBRILLATION
     Dosage: 110 NR
     Route: 048
     Dates: start: 20121017, end: 20121020
  2. LODOZ [Concomitant]
     Indication: HYPERTENSION
     Dosage: 2,5/6,25
     Route: 048
  3. UNI DIAMICRON [Concomitant]
     Indication: DIABETES MELLITUS
     Dosage: 30 NR
     Route: 048

REACTIONS (1)
  - Cardiac failure [Recovered/Resolved with Sequelae]
